FAERS Safety Report 19151891 (Version 1)
Quarter: 2021Q2

REPORT INFORMATION
  Report Type: Spontaneous
  Country: DE (occurrence: DE)
  Receive Date: 20210419
  Receipt Date: 20210419
  Transmission Date: 20210717
  Serious: Yes (Hospitalization, Other)
  Sender: FDA-Public Use
  Company Number: DE-EPICPHARMA-DE-2021EPCLIT00415

PATIENT
  Age: 19 Year
  Sex: Male

DRUGS (2)
  1. PREDNISOLONE. [Interacting]
     Active Substance: PREDNISOLONE
     Indication: PRODUCT USED FOR UNKNOWN INDICATION
     Dosage: 1 MG PER KILOGRAM BODY WEIGHT
     Route: 065
  2. METHADONE HYDROCHLORIDE. [Suspect]
     Active Substance: METHADONE HYDROCHLORIDE
     Indication: PRODUCT USED FOR UNKNOWN INDICATION
     Dosage: 3X2.5 ML
     Route: 042

REACTIONS (5)
  - Encephalopathy [Unknown]
  - Cognitive disorder [Unknown]
  - Central nervous system lesion [Unknown]
  - Noninfective encephalitis [Unknown]
  - Drug abuse [Unknown]
